FAERS Safety Report 20902283 (Version 1)
Quarter: 2022Q2

REPORT INFORMATION
  Report Type: Spontaneous
  Country: US (occurrence: None)
  Receive Date: 20220601
  Receipt Date: 20220601
  Transmission Date: 20220721
  Serious: Yes (Hospitalization, Other)
  Sender: FDA-Public Use
  Company Number: None

PATIENT
  Age: 75 Year
  Sex: Female

DRUGS (2)
  1. IBUPROFEN [Suspect]
     Active Substance: IBUPROFEN
     Indication: Arthralgia
  2. ZYPREXA [Suspect]
     Active Substance: OLANZAPINE
     Indication: Mental disorder
     Dates: start: 20200610

REACTIONS (4)
  - Gastrointestinal pain [None]
  - Constipation [None]
  - Diarrhoea [None]
  - Irritable bowel syndrome [None]

NARRATIVE: CASE EVENT DATE: 20210525
